FAERS Safety Report 10274133 (Version 2)
Quarter: 2014Q3

REPORT INFORMATION
  Report Type: Spontaneous
  Country: US (occurrence: US)
  Receive Date: 20140702
  Receipt Date: 20140723
  Transmission Date: 20150326
  Serious: Yes (Other)
  Sender: FDA-Public Use
  Company Number: US-BAYER-2014-098263

PATIENT
  Age: 36 Year
  Sex: Female

DRUGS (1)
  1. MIRENA [Suspect]
     Active Substance: LEVONORGESTREL
     Indication: CONTRACEPTION
     Dosage: 20 MCG/24HR, CONT
     Route: 015
     Dates: start: 20140604, end: 20140617

REACTIONS (5)
  - Uterine perforation [None]
  - Off label use [None]
  - Device deployment issue [None]
  - Complication of device insertion [None]
  - Abdominal pain [None]

NARRATIVE: CASE EVENT DATE: 20140604
